FAERS Safety Report 14030425 (Version 2)
Quarter: 2018Q2

REPORT INFORMATION
  Report Type: Report from Study
  Country: DE (occurrence: DE)
  Receive Date: 20171002
  Receipt Date: 20180415
  Transmission Date: 20180711
  Serious: Yes (Death)
  Sender: FDA-Public Use
  Company Number: PHHY2017DE118304

PATIENT
  Sex: Female
  Weight: 57 kg

DRUGS (11)
  1. DEKRISTOL [Concomitant]
     Active Substance: CHOLECALCIFEROL
     Indication: OSTEOPOROSIS
     Dosage: 1000 OT, QD
     Route: 048
     Dates: start: 20170316
  2. PANTOZOL CONTROL [Concomitant]
     Indication: PROPHYLAXIS
     Dosage: 40 MG, QD
     Route: 048
     Dates: start: 20130712
  3. HYDROMORPHON RATIOPHARM [Concomitant]
     Indication: PROPHYLAXIS
     Dosage: 4 MG, TID
     Route: 048
     Dates: start: 20170316
  4. ASPIRIN. [Concomitant]
     Active Substance: ASPIRIN
     Indication: LEFT VENTRICULAR FAILURE
     Dosage: 100 MG, QD
     Route: 048
     Dates: start: 20130712
  5. L-THYROXIN HENNING [Concomitant]
     Active Substance: LEVOTHYROXINE SODIUM
     Indication: HYPERTHYROIDISM
     Dosage: 125 UG, QD
     Route: 048
     Dates: start: 20060524
  6. MCP BETA [Concomitant]
     Indication: GASTROENTERITIS
     Dosage: 10 MG, TID
     Route: 048
     Dates: start: 20170316
  7. ZOPLICONE [Concomitant]
     Active Substance: ZOPICLONE
     Indication: SLEEP DISORDER
     Dosage: 75 MG, QD
     Route: 048
     Dates: start: 20170316
  8. CALCIUM VERLA D [Concomitant]
     Indication: OSTEOPOROSIS
     Dosage: 100 MG, TID
     Route: 048
     Dates: start: 20170316
  9. VOTRIENT [Suspect]
     Active Substance: PAZOPANIB HYDROCHLORIDE
     Indication: METASTATIC RENAL CELL CARCINOMA
     Dosage: 600 MG, QD
     Route: 048
     Dates: start: 20170324, end: 20170526
  10. PLAVIX [Concomitant]
     Active Substance: CLOPIDOGREL BISULFATE
     Indication: LEFT VENTRICULAR FAILURE
     Dosage: 75 MG, QD
     Route: 048
     Dates: start: 20130712
  11. EXFORGE [Concomitant]
     Active Substance: AMLODIPINE BESYLATE\VALSARTAN
     Indication: HYPERTENSION
     Dosage: 5 MG, BID
     Route: 048
     Dates: start: 20130712

REACTIONS (2)
  - Malignant neoplasm progression [Fatal]
  - Metastatic renal cell carcinoma [Fatal]

NARRATIVE: CASE EVENT DATE: 20170527
